FAERS Safety Report 14637866 (Version 7)
Quarter: 2018Q2

REPORT INFORMATION
  Report Type: Spontaneous
  Country: PL (occurrence: PL)
  Receive Date: 20180314
  Receipt Date: 20180518
  Transmission Date: 20180711
  Serious: Yes (Hospitalization, Other)
  Sender: FDA-Public Use
  Company Number: PL-BAUSCH-BL-2018-006228

PATIENT
  Age: 61 Year
  Sex: Male

DRUGS (1)
  1. DICLOFENAC SODIUM. [Suspect]
     Active Substance: DICLOFENAC SODIUM
     Indication: GOUT
     Dosage: DOSE DIFFICULT TO ESTIMATE
     Route: 048

REACTIONS (11)
  - Occult blood positive [Recovering/Resolving]
  - Gout [Recovering/Resolving]
  - Tubulointerstitial nephritis [Recovered/Resolved]
  - Oesophagitis [Unknown]
  - Normocytic anaemia [Unknown]
  - Gastrointestinal erosion [Unknown]
  - Blood pressure increased [Unknown]
  - Intentional overdose [Unknown]
  - Disease recurrence [Recovering/Resolving]
  - Chest pain [Recovering/Resolving]
  - Intentional product misuse [Recovered/Resolved]
